FAERS Safety Report 16012247 (Version 2)
Quarter: 2019Q1

REPORT INFORMATION
  Report Type: Spontaneous
  Country: CN (occurrence: CN)
  Receive Date: 20190227
  Receipt Date: 20190311
  Transmission Date: 20190418
  Serious: Yes (Hospitalization, Other)
  Sender: FDA-Public Use
  Company Number: CN-ELI_LILLY_AND_COMPANY-CN201902010337

PATIENT
  Age: 62 Year
  Sex: Female
  Weight: 55 kg

DRUGS (1)
  1. INSULIN HUMAN [Suspect]
     Active Substance: INSULIN HUMAN
     Indication: TYPE 2 DIABETES MELLITUS
     Dosage: 16 IU, DAILY
     Route: 058
     Dates: start: 2014, end: 20180625

REACTIONS (5)
  - Cataract [Unknown]
  - Affective disorder [Unknown]
  - Blood glucose increased [Unknown]
  - Retinal detachment [Unknown]
  - Malaise [Unknown]

NARRATIVE: CASE EVENT DATE: 201706
